FAERS Safety Report 21915542 (Version 1)
Quarter: 2023Q1

REPORT INFORMATION
  Report Type: Spontaneous
  Country: JP (occurrence: JP)
  Receive Date: 20230126
  Receipt Date: 20230126
  Transmission Date: 20230418
  Serious: Yes (Other)
  Sender: FDA-Public Use
  Company Number: JP-009507513-2301JPN008865

PATIENT
  Age: 49 Year
  Sex: Female

DRUGS (1)
  1. PEMBROLIZUMAB [Suspect]
     Active Substance: PEMBROLIZUMAB
     Indication: Neoplasm malignant
     Dosage: UNK

REACTIONS (3)
  - Myocarditis [Unknown]
  - Cardiogenic shock [Unknown]
  - Troponin I increased [Unknown]
